FAERS Safety Report 13381956 (Version 1)
Quarter: 2017Q1

REPORT INFORMATION
  Report Type: Spontaneous
  Country: None (occurrence: US)
  Receive Date: 20170329
  Receipt Date: 20170329
  Transmission Date: 20170429
  Serious: Yes (Hospitalization)
  Sender: FDA-Public Use
  Company Number: None

PATIENT
  Age: 51 Year
  Sex: Female
  Weight: 115 kg

DRUGS (1)
  1. TEMOZOLOMIDE. [Suspect]
     Active Substance: TEMOZOLOMIDE
     Dates: end: 20170220

REACTIONS (7)
  - Seizure [None]
  - Head injury [None]
  - Fall [None]
  - Confusional state [None]
  - Face injury [None]
  - Chest injury [None]
  - Disease progression [None]

NARRATIVE: CASE EVENT DATE: 20170310
